FAERS Safety Report 26172673 (Version 1)
Quarter: 2025Q4

REPORT INFORMATION
  Report Type: Spontaneous
  Country: US (occurrence: US)
  Receive Date: 20251218
  Receipt Date: 20251218
  Transmission Date: 20260117
  Serious: Yes (Death, Life-Threatening, Hospitalization, Other)
  Sender: UNICHEM
  Company Number: US-UNICHEM LABORATORIES LIMITED-UNI-2025-US-004203

PATIENT

DRUGS (1)
  1. AMLODIPINE [Suspect]
     Active Substance: AMLODIPINE BESYLATE
     Indication: Product used for unknown indication
     Dosage: 10 MILLIGRAM (180 TABLETS)
     Route: 065

REACTIONS (13)
  - Suicide attempt [Fatal]
  - Intentional overdose [Fatal]
  - Acute kidney injury [Fatal]
  - Retroperitoneal haematoma [Fatal]
  - Pulmonary embolism [Fatal]
  - Sepsis [Fatal]
  - Hypotension [Fatal]
  - Atrioventricular block complete [Unknown]
  - Respiratory distress [Unknown]
  - Pulmonary oedema [Unknown]
  - Bradycardia [Unknown]
  - Haemodynamic instability [Unknown]
  - Nodal rhythm [Unknown]
